FAERS Safety Report 10083426 (Version 1)
Quarter: 2014Q2

REPORT INFORMATION
  Report Type: Spontaneous
  Country: US (occurrence: None)
  Receive Date: 20140415
  Receipt Date: 20140415
  Transmission Date: 20141212
  Serious: Yes (Life-Threatening, Disabling)
  Sender: FDA-Public Use
  Company Number: 2014P1003016

PATIENT
  Age: 9 Year
  Sex: Female

DRUGS (1)
  1. CLINDAMYCIN [Suspect]
     Indication: PHARYNGITIS STREPTOCOCCAL

REACTIONS (13)
  - Syncope [None]
  - Diarrhoea [None]
  - Nausea [None]
  - Heart rate increased [None]
  - Respiratory rate increased [None]
  - Blood pressure decreased [None]
  - Abdominal pain [None]
  - Sepsis [None]
  - Gas gangrene [None]
  - Muscle necrosis [None]
  - Colitis ischaemic [None]
  - Septic shock [None]
  - Iatrogenic injury [None]
